FAERS Safety Report 6341397-5 (Version None)
Quarter: 2009Q3

REPORT INFORMATION
  Report Type: 
  Country: None (occurrence: None)
  Receive Date: 20090904
  Receipt Date: 20090828
  Transmission Date: 20100115
  Serious: Yes (Other)
  Sender: FDA-Public Use
  Company Number: US-JNJCH-2009022632

PATIENT
  Age: 49 Year
  Sex: Female
  Weight: 87.1 kg

DRUGS (1)
  1. LUBRIDERM ADVANCED THERAPY TRIPLE SMOOTHING BODY LOTION [Suspect]
     Indication: DRY SKIN
     Dosage: TEXT:ENOUGH TO COVER BODY ONCE
     Route: 061
     Dates: start: 20090819, end: 20090819

REACTIONS (3)
  - APPLICATION SITE IRRITATION [None]
  - PRODUCT TAMPERING [None]
  - RASH [None]
